FAERS Safety Report 4366380-0 (Version None)
Quarter: 2004Q2

REPORT INFORMATION
  Report Type: 
  Country: None (occurrence: None)
  Receive Date: 20040526
  Receipt Date: 20040526
  Transmission Date: 20050107
  Serious: Yes (Disabling, Other)
  Sender: FDA-Public Use
  Company Number: None

PATIENT
  Age: 75 Year
  Sex: Male
  Weight: 87.0906 kg

DRUGS (3)
  1. ATENOLOL [Suspect]
     Indication: HYPERTENSION
     Dosage: 50 MG ONCE DAILY BY MOUTH
     Route: 048
     Dates: start: 20040310, end: 20040504
  2. HYDROCHLOROTHIAZIDE [Concomitant]
  3. LISINOPRIL [Concomitant]

REACTIONS (5)
  - ARTHRALGIA [None]
  - DIFFICULTY IN WALKING [None]
  - JOINT SWELLING [None]
  - MUSCLE CRAMP [None]
  - MYALGIA [None]
